FAERS Safety Report 21774422 (Version 1)
Quarter: 2022Q4

REPORT INFORMATION
  Report Type: Spontaneous
  Country: IN (occurrence: IN)
  Receive Date: 20221224
  Receipt Date: 20221224
  Transmission Date: 20230113
  Serious: Yes (Death, Hospitalization)
  Sender: FDA-Public Use
  Company Number: IN-STRIDES ARCOLAB LIMITED-2022SP017304

PATIENT
  Age: 50 Year
  Sex: Female

DRUGS (1)
  1. METHOTREXATE [Suspect]
     Active Substance: METHOTREXATE
     Indication: Rheumatoid arthritis
     Dosage: 15 MILLIGRAM DAILY
     Route: 065

REACTIONS (9)
  - Rectal haemorrhage [Fatal]
  - Pancytopenia [Fatal]
  - Toxicity to various agents [Fatal]
  - Hypokalaemia [Unknown]
  - Bradycardia [Unknown]
  - Intentional product misuse [Unknown]
  - SJS-TEN overlap [Unknown]
  - Acute kidney injury [Unknown]
  - Hypotension [Unknown]
